FAERS Safety Report 4575057-8 (Version None)
Quarter: 2005Q1

REPORT INFORMATION
  Report Type: 
  Country: None (occurrence: None)
  Receive Date: 20050208
  Receipt Date: 20050131
  Transmission Date: 20050727
  Serious: Yes (Other)
  Sender: FDA-Public Use
  Company Number: US-GLAXOSMITHKLINE-A0543098A

PATIENT
  Age: 49 Year
  Sex: Male

DRUGS (7)
  1. LAMICTAL [Suspect]
     Indication: EPILEPSY
     Route: 048
     Dates: start: 19940101
  2. TEGRETOL-XR [Concomitant]
  3. FELBAMATE [Concomitant]
  4. DOVONEX [Concomitant]
  5. DILANTIN [Concomitant]
  6. SABRIL [Concomitant]
  7. CORTICOSTEROIDS [Concomitant]
     Route: 061

REACTIONS (4)
  - CONVULSION [None]
  - ECZEMA [None]
  - PSORIASIS [None]
  - RASH [None]
